FAERS Safety Report 25741079 (Version 1)
Quarter: 2025Q3

REPORT INFORMATION
  Report Type: Spontaneous
  Country: US (occurrence: US)
  Receive Date: 20250829
  Receipt Date: 20250829
  Transmission Date: 20251021
  Serious: No
  Sender: AVERITAS
  Company Number: US-GRUNENTHAL-2025-113634

PATIENT
  Sex: Male

DRUGS (5)
  1. QUTENZA [Suspect]
     Active Substance: CAPSAICIN
     Indication: Product used for unknown indication
     Route: 061
     Dates: start: 20250821, end: 20250821
  2. QUTENZA [Suspect]
     Active Substance: CAPSAICIN
     Route: 061
  3. QUTENZA [Suspect]
     Active Substance: CAPSAICIN
     Route: 061
  4. QUTENZA [Suspect]
     Active Substance: CAPSAICIN
     Route: 061
  5. QUTENZA [Suspect]
     Active Substance: CAPSAICIN
     Route: 061

REACTIONS (2)
  - Burning sensation [Unknown]
  - Hypoaesthesia [Unknown]
